FAERS Safety Report 9358169 (Version 9)
Quarter: 2017Q3

REPORT INFORMATION
  Report Type: Spontaneous
  Country: US (occurrence: US)
  Receive Date: 20130620
  Receipt Date: 20170718
  Transmission Date: 20171128
  Serious: Yes (Death, Hospitalization, Other)
  Sender: FDA-Public Use
  Company Number: US-PFIZER INC-2013184150

PATIENT
  Age: 75 Year
  Sex: Male
  Weight: 127 kg

DRUGS (22)
  1. LYRICA [Suspect]
     Active Substance: PREGABALIN
     Indication: NEUROPATHY PERIPHERAL
     Dosage: 100 MG, 3X/DAY
     Route: 048
     Dates: start: 2001, end: 20170415
  2. LYRICA [Suspect]
     Active Substance: PREGABALIN
     Dosage: 100 MG, 2X/DAY
     Route: 048
  3. COUMADIN [Concomitant]
     Active Substance: WARFARIN SODIUM
     Indication: STENT PLACEMENT
     Dosage: 1 MG, 1X/DAY
  4. LIPITOR [Concomitant]
     Active Substance: ATORVASTATIN CALCIUM
     Indication: HYPERLIPIDAEMIA
  5. MAGNESIUM [Concomitant]
     Active Substance: MAGNESIUM
     Dosage: UNK
  6. B6 [Concomitant]
     Active Substance: PYRIDOXINE HYDROCHLORIDE
     Dosage: UNK
  7. VITAMIN B12 [Concomitant]
     Active Substance: CYANOCOBALAMIN
     Dosage: UNK
  8. NEURONTIN [Concomitant]
     Active Substance: GABAPENTIN
     Dosage: UNK
  9. LYRICA [Suspect]
     Active Substance: PREGABALIN
     Dosage: 100 MG, DAILY
     Route: 048
  10. COENZYME Q10 [Concomitant]
     Active Substance: UBIDECARENONE
     Dosage: UNK
  11. HCTZ [Concomitant]
     Active Substance: HYDROCHLOROTHIAZIDE
     Dosage: UNK
  12. LYRICA [Suspect]
     Active Substance: PREGABALIN
     Dosage: UNK, 3X/DAY, (OCC.)
     Route: 048
     Dates: end: 201704
  13. LYRICA [Suspect]
     Active Substance: PREGABALIN
     Dosage: 1X/DAY (200 TO 300 MG)
     Route: 048
     Dates: end: 201704
  14. NORVASC [Concomitant]
     Active Substance: AMLODIPINE BESYLATE
     Indication: MALIGNANT HYPERTENSION
     Dosage: 5 MG, 1X/DAY
  15. LIPITOR [Concomitant]
     Active Substance: ATORVASTATIN CALCIUM
     Indication: BLOOD CHOLESTEROL INCREASED
     Dosage: 10 MG, 1X/DAY
  16. VITAMIN D [Concomitant]
     Active Substance: CHOLECALCIFEROL
     Dosage: UNK
  17. TOPROL XL [Concomitant]
     Active Substance: METOPROLOL SUCCINATE
     Indication: MALIGNANT HYPERTENSION
     Dosage: 100 MG, 2X/DAY
  18. AMOXICILLIN. [Concomitant]
     Active Substance: AMOXICILLIN
     Indication: ARTHRITIS INFECTIVE
     Dosage: 500 MG, 3X/DAY
  19. LYRICA [Suspect]
     Active Substance: PREGABALIN
     Indication: PAIN IN EXTREMITY
     Dosage: 100 MG, 2X/DAY
     Route: 048
     Dates: start: 2003
  20. LYRICA [Suspect]
     Active Substance: PREGABALIN
     Indication: ARTHRALGIA
     Dosage: 100 MG, 2X/DAY
     Route: 048
  21. DILTIAZEM HCL [Concomitant]
     Active Substance: DILTIAZEM HYDROCHLORIDE
     Indication: MALIGNANT HYPERTENSION
     Dosage: 180 MG, 2X/DAY
  22. LYRICA [Suspect]
     Active Substance: PREGABALIN
     Dosage: UNK, 2X/DAY
     Route: 048
     Dates: end: 201704

REACTIONS (9)
  - Pain [Unknown]
  - Blindness unilateral [Unknown]
  - Drug ineffective [Unknown]
  - Insomnia [Unknown]
  - Intentional product use issue [Unknown]
  - Death [Fatal]
  - Visual acuity reduced [Unknown]
  - Blindness [Unknown]
  - Vision blurred [Unknown]

NARRATIVE: CASE EVENT DATE: 2011
